FAERS Safety Report 6153439-0 (Version None)
Quarter: 2009Q2

REPORT INFORMATION
  Report Type: 
  Country: None (occurrence: None)
  Receive Date: 20090409
  Receipt Date: 20090409
  Transmission Date: 20091009
  Serious: No
  Sender: FDA-Public Use
  Company Number: None

PATIENT
  Sex: Female

DRUGS (7)
  1. ACTONEL [Suspect]
     Indication: OSTEOPENIA
     Dosage: 1 WEEKLY MOUTH
     Route: 048
     Dates: start: 20081006
  2. ACTONEL [Suspect]
     Indication: OSTEOPENIA
     Dosage: 1 WEEKLY MOUTH
     Route: 048
     Dates: start: 20081013
  3. ACTONEL [Suspect]
     Indication: OSTEOPENIA
     Dosage: 1 WEEKLY MOUTH
     Route: 048
     Dates: start: 20081020
  4. ACTONEL [Suspect]
     Indication: OSTEOPENIA
     Dosage: 1 WEEKLY MOUTH
     Route: 048
     Dates: start: 20081027
  5. ACTONEL [Suspect]
     Dosage: 1 MONTH MOUTH
     Route: 048
     Dates: start: 20081103
  6. ACTONEL [Suspect]
     Dosage: 1 MONTH MOUTH
     Route: 048
     Dates: start: 20081202
  7. ACTONEL [Suspect]
     Dosage: 1 MONTH MOUTH
     Route: 048
     Dates: start: 20090102

REACTIONS (3)
  - EAR PAIN [None]
  - PAIN IN EXTREMITY [None]
  - PAIN IN JAW [None]
